FAERS Safety Report 22324161 (Version 1)
Quarter: 2023Q2

REPORT INFORMATION
  Report Type: Spontaneous
  Country: NO (occurrence: None)
  Receive Date: 20230516
  Receipt Date: 20230516
  Transmission Date: 20230722
  Serious: Yes (Other)
  Sender: FDA-Public Use
  Company Number: NO-ROCHE-3346927

PATIENT
  Sex: Male

DRUGS (19)
  1. POLATUZUMAB VEDOTIN [Suspect]
     Active Substance: POLATUZUMAB VEDOTIN
     Indication: Diffuse large B-cell lymphoma
     Dosage: 5TH LINE SYSTEMIC TREATMENT
     Route: 065
     Dates: start: 20230202, end: 20230503
  2. RITUXIMAB [Suspect]
     Active Substance: RITUXIMAB
     Indication: Diffuse large B-cell lymphoma
     Dosage: 1ST SYSTEMIC TREATMENT
     Route: 065
     Dates: start: 20101006, end: 20110112
  3. RITUXIMAB [Suspect]
     Active Substance: RITUXIMAB
     Dosage: 2ND SYSTEMIC TREATMENT
     Route: 065
     Dates: start: 20120419, end: 20120620
  4. RITUXIMAB [Suspect]
     Active Substance: RITUXIMAB
     Dosage: 3RD SYSTEMIC TREATMENT
     Route: 065
     Dates: start: 20130629, end: 20131122
  5. RITUXIMAB [Suspect]
     Active Substance: RITUXIMAB
     Dosage: 4TH SYSTEMIC TREATMENT
     Route: 065
     Dates: start: 20160118, end: 20160302
  6. CYCLOPHOSPHAMIDE [Suspect]
     Active Substance: CYCLOPHOSPHAMIDE
     Indication: Diffuse large B-cell lymphoma
     Dosage: 1ST SYSTEMIC TREATMENT
     Route: 065
     Dates: start: 20101006, end: 20110112
  7. CYCLOPHOSPHAMIDE [Suspect]
     Active Substance: CYCLOPHOSPHAMIDE
     Dosage: 4TH SYSTEMIC TREATMENT
     Route: 065
     Dates: start: 20160118, end: 20160302
  8. DOXORUBICIN [Suspect]
     Active Substance: DOXORUBICIN
     Indication: Diffuse large B-cell lymphoma
     Dosage: 1ST SYSTEMIC TREATMENT
     Route: 065
     Dates: start: 20101006, end: 20110112
  9. DOXORUBICIN [Suspect]
     Active Substance: DOXORUBICIN
     Dosage: 4TH SYSTEMIC TREATMENT
     Route: 065
     Dates: start: 20160118, end: 20160302
  10. VINCRISTINE [Suspect]
     Active Substance: VINCRISTINE
     Indication: Diffuse large B-cell lymphoma
     Dosage: 1ST SYSTEMIC TREATMENT
     Route: 065
     Dates: start: 20101006, end: 20110112
  11. VINCRISTINE [Suspect]
     Active Substance: VINCRISTINE
     Dosage: 4TH SYSTEMIC TREATMENT
     Route: 065
     Dates: start: 20160118, end: 20160302
  12. PREDNISONE [Suspect]
     Active Substance: PREDNISONE
     Indication: Diffuse large B-cell lymphoma
     Dosage: 1ST SYSTEMIC TREATMENT
     Route: 065
     Dates: start: 20101006, end: 20110112
  13. PREDNISONE [Suspect]
     Active Substance: PREDNISONE
     Dosage: 4TH SYSTEMIC TREATMENT
     Route: 065
     Dates: start: 20160118, end: 20160302
  14. ETOPOSIDE [Suspect]
     Active Substance: ETOPOSIDE
     Indication: Diffuse large B-cell lymphoma
     Dosage: 2ND SYSTEMIC TREATMENT
     Route: 065
     Dates: start: 20120419, end: 20120620
  15. ETOPOSIDE [Suspect]
     Active Substance: ETOPOSIDE
     Dosage: 3RD SYSTEMIC TREATMENT
     Route: 065
     Dates: start: 20130629, end: 20131122
  16. CYTARABINE [Suspect]
     Active Substance: CYTARABINE
     Indication: Diffuse large B-cell lymphoma
     Dosage: 2ND SYSTEMIC TREATMENT
     Route: 065
     Dates: start: 20120419, end: 20120620
  17. BLEOMYCIN [Suspect]
     Active Substance: BLEOMYCIN SULFATE
     Indication: Diffuse large B-cell lymphoma
     Dosage: 2ND SYSTEMIC TREATMENT
     Route: 065
     Dates: start: 20120419, end: 20120620
  18. METHOTREXATE SODIUM [Suspect]
     Active Substance: METHOTREXATE SODIUM
     Indication: Diffuse large B-cell lymphoma
     Dosage: 3RD SYSTEMIC TREATMENT
     Route: 065
     Dates: start: 20130629, end: 20131122
  19. IFOSFAMIDE [Suspect]
     Active Substance: IFOSFAMIDE
     Indication: Diffuse large B-cell lymphoma
     Dosage: 3RD SYSTEMIC TREATMENT
     Route: 065
     Dates: start: 20130629, end: 20131122

REACTIONS (2)
  - Disease progression [Unknown]
  - Blood lactate dehydrogenase increased [Unknown]
